FAERS Safety Report 6303323-4 (Version None)
Quarter: 2009Q3

REPORT INFORMATION
  Report Type: 
  Country: None (occurrence: None)
  Receive Date: 20090810
  Receipt Date: 20090522
  Transmission Date: 20100115
  Serious: No
  Sender: FDA-Public Use
  Company Number: A0785872A

PATIENT
  Age: 17 Year
  Sex: Female

DRUGS (2)
  1. TREXIMET [Suspect]
     Indication: DRUG USE FOR UNKNOWN INDICATION
     Dosage: 85MG AS REQUIRED
     Route: 048
     Dates: start: 20090519
  2. NO CONCURRENT MEDICATION [Concomitant]

REACTIONS (1)
  - FLUSHING [None]
